FAERS Safety Report 12381858 (Version 2)
Quarter: 2016Q2

REPORT INFORMATION
  Report Type: Spontaneous
  Country: US (occurrence: US)
  Receive Date: 20160518
  Receipt Date: 20160525
  Transmission Date: 20160815
  Serious: Yes (Hospitalization, Other)
  Sender: FDA-Public Use
  Company Number: US-MDT-ADR-2016-00898

PATIENT
  Age: 7 Year

DRUGS (3)
  1. BACLOFEN. [Suspect]
     Active Substance: BACLOFEN
     Dosage: 40 MG/DAY
     Route: 048
     Dates: start: 20160426
  2. BACLOFEN. [Suspect]
     Active Substance: BACLOFEN
     Dosage: 20 MG EVERY 4-6 HOURS
     Route: 048
  3. GABLOFEN [Suspect]
     Active Substance: BACLOFEN
     Dosage: 225 MCG/DAY
     Route: 037

REACTIONS (1)
  - No adverse event [Unknown]
